FAERS Safety Report 18839452 (Version 1)
Quarter: 2021Q1

REPORT INFORMATION
  Report Type: Spontaneous
  Country: JP (occurrence: JP)
  Receive Date: 20210203
  Receipt Date: 20210203
  Transmission Date: 20210419
  Serious: Yes (Hospitalization)
  Sender: FDA-Public Use
  Company Number: JP-BAYER-2020-178203

PATIENT
  Age: 71 Year
  Sex: Female
  Weight: 48 kg

DRUGS (4)
  1. NEXAVAR [Suspect]
     Active Substance: SORAFENIB
     Indication: RENAL CELL CARCINOMA
     Dosage: DAILY DOSE 400MG
     Route: 048
     Dates: start: 20200804, end: 20200813
  2. OPDIVO [Suspect]
     Active Substance: NIVOLUMAB
     Indication: RENAL CELL CARCINOMA
     Dosage: DAILY DOSE 240 MG
     Route: 041
     Dates: start: 20190528, end: 20200721
  3. AMLODIPINE [Concomitant]
     Active Substance: AMLODIPINE BESYLATE
     Indication: HYPERTENSION
     Dosage: DAILY DOSE 2.5 MG
     Route: 048
     Dates: start: 20140911
  4. POLAPREZINC [Concomitant]
     Active Substance: POLAPREZINC
     Indication: GASTRIC ULCER
     Dosage: DAILY DOSE 150 MG
     Route: 048
     Dates: start: 20130410

REACTIONS (5)
  - Erythema [Recovered/Resolved]
  - Inflammation [None]
  - Off label use [None]
  - Stevens-Johnson syndrome [Recovered/Resolved]
  - Liver disorder [None]

NARRATIVE: CASE EVENT DATE: 20200813
